FAERS Safety Report 8470238-5 (Version None)
Quarter: 2012Q2

REPORT INFORMATION
  Report Type: 
  Country: None (occurrence: None)
  Receive Date: 20120621
  Receipt Date: 20120621
  Transmission Date: 20120825
  Serious: Yes (Other)
  Sender: FDA-Public Use
  Company Number: None

PATIENT
  Sex: Female

DRUGS (6)
  1. HYDROCODON [Concomitant]
  2. AMLODIPINE BESYLATE [Suspect]
     Indication: HYPERTENSION
     Dosage: 5 MG ONCE A NIGHT PO
     Route: 048
     Dates: start: 20120615, end: 20120617
  3. THROID HORMONE [Concomitant]
  4. ZOLOFT [Concomitant]
  5. VALIUM [Concomitant]
  6. LISINOPRIL [Concomitant]

REACTIONS (8)
  - DYSGEUSIA [None]
  - ABDOMINAL PAIN UPPER [None]
  - HICCUPS [None]
  - RETCHING [None]
  - HEADACHE [None]
  - HYPOPHAGIA [None]
  - PAIN [None]
  - TREMOR [None]
